FAERS Safety Report 7218251-X (Version None)
Quarter: 2010Q4

REPORT INFORMATION
  Report Type: 
  Country: None (occurrence: None)
  Receive Date: 20101126
  Receipt Date: 20100927
  Transmission Date: 20110411
  Serious: No
  Sender: FDA-Public Use
  Company Number: 315637

PATIENT
  Sex: Female

DRUGS (1)
  1. VICTOZA [Suspect]
     Indication: PRODUCT USED FOR UNKNOWN INDICATION
     Dosage: 1.8, SUBCUTANEOUS ; 1.2, SUBCUTANEOUS
     Route: 058
     Dates: start: 20100801

REACTIONS (2)
  - ABDOMINAL DISTENSION [None]
  - FLATULENCE [None]
